FAERS Safety Report 16938954 (Version 1)
Quarter: 2019Q4

REPORT INFORMATION
  Report Type: Spontaneous
  Country: US (occurrence: US)
  Receive Date: 20191020
  Receipt Date: 20191020
  Transmission Date: 20200122
  Serious: No
  Sender: FDA-Public Use
  Company Number: NVSC2019US007891

PATIENT
  Sex: Male

DRUGS (4)
  1. TRIESENCE [Suspect]
     Active Substance: TRIAMCINOLONE ACETONIDE
     Indication: PRODUCT USED FOR UNKNOWN INDICATION
     Dosage: UNK
     Route: 065
  2. AVAPRO [Concomitant]
     Active Substance: IRBESARTAN
     Indication: PRODUCT USED FOR UNKNOWN INDICATION
     Dosage: UNK
     Route: 065
  3. AMLODIPINE [Concomitant]
     Active Substance: AMLODIPINE BESYLATE
     Indication: PRODUCT USED FOR UNKNOWN INDICATION
     Dosage: UNK
     Route: 065
  4. AVODART [Concomitant]
     Active Substance: DUTASTERIDE
     Indication: PRODUCT USED FOR UNKNOWN INDICATION
     Dosage: UNK
     Route: 065

REACTIONS (13)
  - Heart rate increased [Unknown]
  - Palpitations [Unknown]
  - Anxiety [Unknown]
  - Vision blurred [Unknown]
  - Hypertension [Unknown]
  - Decreased appetite [Unknown]
  - Vitreous floaters [Unknown]
  - Dyspnoea [Unknown]
  - Fatigue [Unknown]
  - Panic attack [Unknown]
  - Nausea [Unknown]
  - Weight decreased [Unknown]
  - Asthenia [Unknown]
